FAERS Safety Report 9637846 (Version 1)
Quarter: 2013Q4

REPORT INFORMATION
  Report Type: Spontaneous
  Country: DE (occurrence: DE)
  Receive Date: 20131022
  Receipt Date: 20131022
  Transmission Date: 20140711
  Serious: Yes (Congenital Anomaly)
  Sender: FDA-Public Use
  Company Number: DE-ASTRAZENECA-2013SE76576

PATIENT
  Age: 1 Day
  Sex: Female
  Weight: 3.4 kg

DRUGS (4)
  1. SYMBICORT [Suspect]
     Indication: ASTHMA
     Route: 064
  2. NOVOPULMON 200 NOVOLIZER [Suspect]
     Indication: ASTHMA
     Route: 064
  3. SALBUTAMOL [Concomitant]
     Indication: ASTHMA
     Dosage: SPORADICALLY
     Route: 064
  4. FOLIC ACID [Concomitant]
     Indication: PROPHYLAXIS OF NEURAL TUBE DEFECT
     Route: 064

REACTIONS (3)
  - Congenital ureterocele [Not Recovered/Not Resolved]
  - Kidney duplex [Not Recovered/Not Resolved]
  - Ureteric dilatation [Not Recovered/Not Resolved]
